FAERS Safety Report 14857910 (Version 1)
Quarter: 2018Q2

REPORT INFORMATION
  Report Type: Spontaneous
  Country: FR (occurrence: FR)
  Receive Date: 20180508
  Receipt Date: 20180508
  Transmission Date: 20180711
  Serious: Yes (Hospitalization)
  Sender: FDA-Public Use
  Company Number: FR-TEVA-2018-FR-890875

PATIENT
  Age: 65 Year
  Sex: Female
  Weight: 120 kg

DRUGS (12)
  1. COPAXONE [Suspect]
     Active Substance: GLATIRAMER ACETATE
     Dosage: 20 MILLIGRAM DAILY;
     Route: 065
  2. DIFFU K, G?LULE [Concomitant]
     Active Substance: POTASSIUM CHLORIDE
     Dosage: 600 MILLIGRAM DAILY;
     Route: 048
  3. COPAXONE [Suspect]
     Active Substance: GLATIRAMER ACETATE
     Indication: RELAPSING-REMITTING MULTIPLE SCLEROSIS
     Route: 058
  4. BISOPROLOL (HEMIFUMARATE DE) [Concomitant]
     Active Substance: BISOPROLOL FUMARATE
     Dosage: 2.5 MILLIGRAM DAILY;
     Route: 048
  5. IMOVANE [Concomitant]
     Active Substance: ZOPICLONE
     Dosage: 3.75 MILLIGRAM DAILY;
     Route: 048
  6. ABILIFY 5 MG, COMPRIM? [Concomitant]
     Dosage: 5 MILLIGRAM DAILY;
     Route: 048
  7. IBUPROFENE [Concomitant]
     Active Substance: IBUPROFEN
     Route: 048
  8. VESICARE 10 MG, COMPRIM? PELLICUL? [Concomitant]
     Dosage: 10 MILLIGRAM DAILY;
     Route: 048
  9. DEPAKOTE 125 MG, COMPRIM? GASTRO-R?SISTANT [Concomitant]
     Dosage: 125 MILLIGRAM DAILY;
     Route: 048
  10. LEVOTHYROX 100 MICROGRAMMES, COMPRIM? S?CABLE [Concomitant]
     Active Substance: LEVOTHYROXINE SODIUM
     Dosage: 1 DOSAGE FORMS DAILY;
     Route: 048
  11. HYDROCHLOROTHIAZIDE. [Concomitant]
     Active Substance: HYDROCHLOROTHIAZIDE
     Dosage: 6.5 MILLIGRAM DAILY;
     Route: 048
  12. PARACETAMOL [Concomitant]
     Active Substance: ACETAMINOPHEN
     Route: 048

REACTIONS (1)
  - Embolia cutis medicamentosa [Recovered/Resolved]
